FAERS Safety Report 24432595 (Version 1)
Quarter: 2024Q4

REPORT INFORMATION
  Report Type: Spontaneous
  Country: AU (occurrence: AU)
  Receive Date: 20241014
  Receipt Date: 20241014
  Transmission Date: 20250114
  Serious: Yes (Other)
  Sender: MYLAN
  Company Number: AU-MYLANLABS-2024M1091336

PATIENT
  Age: 5 Decade
  Sex: Female

DRUGS (7)
  1. DEXAMETHASONE [Suspect]
     Active Substance: DEXAMETHASONE
     Indication: Vestibular disorder
     Dosage: THREE DOSES; 4MG IN 1 ML (INTRATYMPANIC)
     Route: 065
  2. ASPIRIN [Concomitant]
     Active Substance: ASPIRIN
     Indication: Product used for unknown indication
     Dosage: UNK
     Route: 065
  3. CLOPIDOGREL [Concomitant]
     Active Substance: CLOPIDOGREL BISULFATE
     Indication: Product used for unknown indication
     Dosage: UNK
     Route: 065
  4. PREDNISONE [Concomitant]
     Active Substance: PREDNISONE
     Indication: Labyrinthitis
     Dosage: 50 MILLIGRAM, QD
     Route: 048
  5. PREDNISONE [Concomitant]
     Active Substance: PREDNISONE
     Indication: Vestibular disorder
  6. ACYCLOVIR [Concomitant]
     Active Substance: ACYCLOVIR
     Indication: Labyrinthitis
     Dosage: 500 MILLIGRAM, BID
     Route: 065
  7. ACYCLOVIR [Concomitant]
     Active Substance: ACYCLOVIR
     Indication: Vestibular disorder

REACTIONS (1)
  - Drug ineffective [Unknown]
